FAERS Safety Report 8949877 (Version 3)
Quarter: 2012Q4

REPORT INFORMATION
  Report Type: 
  Country: US (occurrence: US)
  Receive Date: 20121206
  Receipt Date: 20121214
  Transmission Date: 20130627
  Serious: Yes (Death, Hospitalization)
  Sender: FDA-Public Use
  Company Number: US-GILEAD-2012-0065785

PATIENT
  Sex: Female

DRUGS (9)
  1. LETAIRIS [Suspect]
     Indication: PULMONARY HYPERTENSION
     Dosage: 10 UNK, UNK
     Route: 048
     Dates: start: 201210
  2. LETAIRIS [Suspect]
     Dosage: 5 UNK, UNK
     Route: 048
     Dates: start: 2011
  3. LETAIRIS [Suspect]
     Dosage: 10 UNK, UNK
     Route: 048
     Dates: start: 201203
  4. MYCOPHENOLATE MOFETIL [Concomitant]
  5. MAGNESIUM OXIDE [Concomitant]
  6. ZOFRAN                             /00955302/ [Concomitant]
  7. PANTOPRAZOLE [Concomitant]
  8. SPIRONOLACTONE [Concomitant]
  9. IRON [Concomitant]

REACTIONS (4)
  - Pulmonary hypertension [Fatal]
  - Ascites [Unknown]
  - Pleural effusion [Unknown]
  - Hypoxia [Unknown]
